FAERS Safety Report 8188655-X (Version None)
Quarter: 2012Q1

REPORT INFORMATION
  Report Type: 
  Country: None (occurrence: None)
  Receive Date: 20120306
  Receipt Date: 20120228
  Transmission Date: 20120608
  Serious: Yes (Hospitalization, Disabling, Other)
  Sender: FDA-Public Use
  Company Number: US-MYLANLABS-2012S1004385

PATIENT
  Age: 67 Year
  Sex: Female
  Weight: 36.29 kg

DRUGS (12)
  1. LEVOTHYROXINE SODIUM [Suspect]
     Indication: THYROIDECTOMY
     Dates: start: 19950101
  2. PROAIR HFA [Suspect]
     Indication: RESPIRATORY DISORDER
  3. KLONOPIN [Suspect]
     Indication: NERVOUSNESS
     Dates: start: 20110101
  4. SINGULAIR [Suspect]
     Indication: RESPIRATORY DISORDER
  5. NEXIUM [Suspect]
     Indication: GASTRIC DISORDER
  6. IPRATROPIUM BROMIDE AND ALBUTEROL SULFATE [Suspect]
     Indication: RESPIRATORY DISORDER
  7. ASPIRIN [Suspect]
     Dates: start: 20111001
  8. CHANTIX [Suspect]
     Indication: SMOKING CESSATION THERAPY
     Route: 048
     Dates: start: 20110901, end: 20120101
  9. ADVAIR DISKUS 100/50 [Suspect]
     Indication: RESPIRATORY DISORDER
  10. METOCLOPRAMIDE [Suspect]
     Indication: GASTRIC DISORDER
     Dates: start: 20111001
  11. HYDROCODONE BITARTRATE [Suspect]
     Indication: ARTHRALGIA
     Dates: start: 20110101
  12. CALCIUM CARBONATE [Suspect]
     Dates: start: 20111201

REACTIONS (6)
  - ABASIA [None]
  - POTENTIATING DRUG INTERACTION [None]
  - CEREBROVASCULAR ACCIDENT [None]
  - MENTAL IMPAIRMENT [None]
  - MUTISM [None]
  - GAIT DISTURBANCE [None]
